FAERS Safety Report 24187814 (Version 2)
Quarter: 2024Q4

REPORT INFORMATION
  Report Type: Spontaneous
  Country: US (occurrence: US)
  Receive Date: 20240808
  Receipt Date: 20241219
  Transmission Date: 20250115
  Serious: Yes (Other)
  Sender: ELI LILLY AND COMPANY
  Company Number: US-ELI_LILLY_AND_COMPANY-US202408003975

PATIENT
  Age: 43 Year
  Sex: Female

DRUGS (43)
  1. TRULICITY [Suspect]
     Active Substance: DULAGLUTIDE
     Indication: Type 2 diabetes mellitus
     Dosage: 0.75 MG, WEEKLY (1/W)
     Route: 065
     Dates: start: 20160217, end: 20220621
  2. TRULICITY [Suspect]
     Active Substance: DULAGLUTIDE
     Indication: Obesity
     Dosage: UNK, UNKNOWN
     Route: 065
     Dates: end: 20221024
  3. OZEMPIC [Suspect]
     Active Substance: SEMAGLUTIDE
     Indication: Type 2 diabetes mellitus
     Dosage: 0.25 MG, WEEKLY (1/W)
     Route: 065
     Dates: start: 20220621, end: 20221024
  4. OZEMPIC [Suspect]
     Active Substance: SEMAGLUTIDE
     Indication: Obesity
     Dosage: 1 MG, WEEKLY (1/W)
     Route: 065
     Dates: start: 20221020, end: 20221119
  5. METFORMIN [Concomitant]
     Active Substance: METFORMIN HYDROCHLORIDE
     Indication: Diabetes mellitus
     Dosage: UNK
     Dates: start: 20160107, end: 20240104
  6. LANSOPRAZOLE [Concomitant]
     Active Substance: LANSOPRAZOLE
     Indication: Gastric ulcer
     Dosage: UNK
     Dates: start: 20160130, end: 20180119
  7. SYNTHROID [Concomitant]
     Active Substance: LEVOTHYROXINE SODIUM
     Indication: Thyroid disorder
     Dosage: UNK
     Dates: start: 20160220
  8. BUTALBITAL [Concomitant]
     Active Substance: BUTALBITAL
     Indication: Headache
     Dosage: UNK
     Dates: start: 20170126
  9. SERTRALINE [Concomitant]
     Active Substance: SERTRALINE HYDROCHLORIDE
     Indication: Depression
     Dosage: UNK
     Dates: start: 20160623, end: 20210319
  10. TRAMADOL [Concomitant]
     Active Substance: TRAMADOL
     Indication: Pain
     Dosage: UNK
     Dates: start: 20160608, end: 20230516
  11. TOPIRAMATE [Concomitant]
     Active Substance: TOPIRAMATE
     Indication: Seizure
     Dosage: UNK
     Dates: start: 20160831
  12. DICLOFENAC [Concomitant]
     Active Substance: DICLOFENAC
     Indication: Inflammation
     Dosage: UNK
     Dates: start: 20180916
  13. PRAVASTATIN SODIUM [Concomitant]
     Active Substance: PRAVASTATIN SODIUM
     Indication: Blood cholesterol increased
     Dosage: UNK
     Dates: start: 20160711, end: 20180626
  14. DULOXETINE [Concomitant]
     Active Substance: DULOXETINE
     Indication: Depression
     Dosage: UNK
     Dates: start: 20160711, end: 20180626
  15. TIROSINT [Concomitant]
     Active Substance: LEVOTHYROXINE SODIUM
     Indication: Hypothyroidism
     Dosage: UNK
     Dates: start: 20180903, end: 20190217
  16. PIOGLITAZONE [Concomitant]
     Active Substance: PIOGLITAZONE
     Indication: Diabetes mellitus
     Dosage: UNK
     Dates: start: 20180418, end: 20230403
  17. ESCITALOPRAM [Concomitant]
     Active Substance: ESCITALOPRAM OXALATE
     Indication: Anxiety
     Dosage: UNK
     Dates: start: 20191001, end: 20230726
  18. ESCITALOPRAM [Concomitant]
     Active Substance: ESCITALOPRAM OXALATE
     Indication: Depression
  19. LITHIUM [Concomitant]
     Active Substance: LITHIUM
     Indication: Mood swings
     Dosage: UNK
     Dates: start: 20190401, end: 20190418
  20. LATUDA [Concomitant]
     Active Substance: LURASIDONE HYDROCHLORIDE
     Indication: Depression
     Dosage: UNK
     Dates: start: 20190519, end: 20220901
  21. LISINOPRIL [Concomitant]
     Active Substance: LISINOPRIL
     Indication: Blood pressure measurement
     Dosage: UNK
     Dates: start: 20170130, end: 20240104
  22. JANUVIA [Concomitant]
     Active Substance: SITAGLIPTIN PHOSPHATE
     Indication: Diabetes mellitus
     Dosage: UNK
     Dates: start: 20170324, end: 20180423
  23. JARDIANCE [Concomitant]
     Active Substance: EMPAGLIFLOZIN
     Indication: Diabetes mellitus
     Dosage: UNK
     Dates: start: 20180428
  24. RISPERIDONE [Concomitant]
     Active Substance: RISPERIDONE
     Indication: Bipolar disorder
     Dosage: UNK
     Dates: start: 20180730, end: 20180824
  25. HYDROXYZINE [Concomitant]
     Active Substance: HYDROXYZINE HYDROCHLORIDE
     Indication: Anxiety
     Dosage: UNK
     Dates: start: 20180827, end: 20231222
  26. CLONAZEPAM [Concomitant]
     Active Substance: CLONAZEPAM
     Indication: Panic attack
     Dosage: UNK
     Dates: start: 20180920
  27. LACTINEX [LACTOBACILLUS ACIDOPHILUS;LACTOBACI [Concomitant]
     Indication: Diarrhoea
     Dosage: UNK
     Dates: start: 20181106
  28. LAMOTRIGINE [Concomitant]
     Active Substance: LAMOTRIGINE
     Indication: Depression
     Dosage: UNK
     Dates: start: 20180907, end: 20190207
  29. QUETIAPINE [Concomitant]
     Active Substance: QUETIAPINE
     Indication: Depression
     Dosage: UNK
     Dates: start: 20190401
  30. CELECOXIB [Concomitant]
     Active Substance: CELECOXIB
     Indication: Pain
     Dosage: UNK
     Dates: start: 20110401
  31. BENZTROPINE MESYLATE [Concomitant]
     Active Substance: BENZTROPINE MESYLATE
     Indication: Musculoskeletal stiffness
     Dosage: UNK
     Dates: start: 20180827, end: 20240401
  32. MIRTAZAPINE [Concomitant]
     Active Substance: MIRTAZAPINE
     Indication: Depression
     Dosage: UNK
     Dates: start: 20191101, end: 20240104
  33. BELSOMRA [Concomitant]
     Active Substance: SUVOREXANT
     Indication: Insomnia
     Dosage: UNK
     Dates: start: 20191218
  34. ATORVASTATIN [Concomitant]
     Active Substance: ATORVASTATIN
     Indication: Blood cholesterol
     Dosage: UNK
     Dates: start: 20191220, end: 20201226
  35. SYNJARDY [Concomitant]
     Active Substance: EMPAGLIFLOZIN\METFORMIN HYDROCHLORIDE
     Indication: Diabetes mellitus
     Dosage: UNK
     Dates: start: 20200226, end: 20200831
  36. MECLIZINE HYDROCHLORIDE [Concomitant]
     Active Substance: MECLIZINE HYDROCHLORIDE
     Indication: Nausea
     Dosage: UNK
     Dates: start: 20200414
  37. MECLIZINE HYDROCHLORIDE [Concomitant]
     Active Substance: MECLIZINE HYDROCHLORIDE
     Indication: Vomiting
  38. COLESEVELAM [Concomitant]
     Active Substance: COLESEVELAM
     Indication: Blood cholesterol
     Dosage: UNK
     Dates: start: 20200728
  39. CARISOPRODOL [Concomitant]
     Active Substance: CARISOPRODOL
     Indication: Muscle tightness
     Dosage: UNK
     Dates: start: 20120513, end: 20201108
  40. VASCEPA [Concomitant]
     Active Substance: ICOSAPENT ETHYL
     Indication: Myocardial infarction
     Dosage: UNK
     Dates: start: 20201028
  41. EMPAGLIFLOZIN\LINAGLIPTIN\METFORMIN HYDROCHLORIDE [Concomitant]
     Active Substance: EMPAGLIFLOZIN\LINAGLIPTIN\METFORMIN HYDROCHLORIDE
     Indication: Diabetes mellitus
     Dosage: UNK
     Dates: start: 20201028, end: 20230713
  42. BACLOFEN [Concomitant]
     Active Substance: BACLOFEN
     Indication: Musculoskeletal stiffness
     Dosage: UNK
     Dates: start: 20211201
  43. ORPHENADRINE [Concomitant]
     Active Substance: ORPHENADRINE
     Indication: Hypotonia
     Dosage: UNK
     Dates: start: 20210515

REACTIONS (7)
  - Impaired gastric emptying [Not Recovered/Not Resolved]
  - Vomiting [Not Recovered/Not Resolved]
  - Nausea [Not Recovered/Not Resolved]
  - Abdominal pain [Not Recovered/Not Resolved]
  - Diarrhoea [Not Recovered/Not Resolved]
  - Anxiety [Unknown]
  - Depression [Unknown]

NARRATIVE: CASE EVENT DATE: 20230211
